FAERS Safety Report 15665912 (Version 1)
Quarter: 2018Q4

REPORT INFORMATION
  Report Type: Report from Study
  Country: US (occurrence: US)
  Receive Date: 20181128
  Receipt Date: 20181128
  Transmission Date: 20190205
  Serious: Yes (Hospitalization, Other)
  Sender: FDA-Public Use
  Company Number: US-JAZZ-2018-US-017005

PATIENT
  Age: 13 Year
  Sex: Female
  Weight: 66.5 kg

DRUGS (2)
  1. CYTARABINE. [Concomitant]
     Active Substance: CYTARABINE
     Indication: ACUTE MYELOID LEUKAEMIA
     Dosage: UNK
     Route: 037
     Dates: start: 20180316
  2. CPX-351 [Suspect]
     Active Substance: CYTARABINE\DAUNORUBICIN
     Indication: ACUTE MYELOID LEUKAEMIA
     Dosage: 135 IU/M2, UNK
     Route: 042
     Dates: start: 20180316, end: 20180321

REACTIONS (5)
  - Dysuria [Recovered/Resolved]
  - Folliculitis [Unknown]
  - Rash maculo-papular [Unknown]
  - Cellulitis [Unknown]
  - Febrile neutropenia [Recovered/Resolved]

NARRATIVE: CASE EVENT DATE: 20180319
